FAERS Safety Report 8884883 (Version 1)
Quarter: 2012Q4

REPORT INFORMATION
  Report Type: 
  Country: US (occurrence: US)
  Receive Date: 20121102
  Receipt Date: 20121102
  Transmission Date: 20130627
  Serious: No
  Sender: FDA-Public Use
  Company Number: US-PFIZER INC-2012273455

PATIENT
  Age: 52 Year
  Sex: Male
  Weight: 78.46 kg

DRUGS (6)
  1. CHANTIX [Suspect]
     Indication: SMOKING CESSATION THERAPY
     Dosage: 0.5 mg, 1x/day
     Route: 048
     Dates: start: 20121025, end: 201210
  2. CHANTIX [Suspect]
     Dosage: 0.5 mg, 2x/day
     Route: 048
     Dates: start: 201210
  3. SYMBICORT [Concomitant]
     Indication: ASTHMA
     Dosage: UNK,2x/day
  4. SYMBICORT [Concomitant]
     Indication: CHRONIC OBSTRUCTIVE PULMONARY DISEASE
  5. ALBUTEROL [Concomitant]
     Indication: BREATHING DIFFICULT
     Dosage: UNK,as needed
  6. COMBIVENT [Concomitant]
     Indication: CHRONIC OBSTRUCTIVE PULMONARY DISEASE
     Dosage: 14.7 mg, 4x/day

REACTIONS (1)
  - Hyperhidrosis [Not Recovered/Not Resolved]
